FAERS Safety Report 13192077 (Version 1)
Quarter: 2017Q1

REPORT INFORMATION
  Report Type: Spontaneous
  Country: US (occurrence: US)
  Receive Date: 20170207
  Receipt Date: 20170207
  Transmission Date: 20170428
  Serious: No
  Sender: FDA-Public Use
  Company Number: US-PFIZER INC-2017049296

PATIENT
  Sex: Male

DRUGS (1)
  1. XELJANZ XR [Suspect]
     Active Substance: TOFACITINIB CITRATE
     Dosage: UNK

REACTIONS (5)
  - Tenderness [Unknown]
  - Musculoskeletal stiffness [Recovering/Resolving]
  - Constipation [Unknown]
  - Arthralgia [Recovering/Resolving]
  - Gastrooesophageal reflux disease [Unknown]
